FAERS Safety Report 7529926-7 (Version None)
Quarter: 2011Q2

REPORT INFORMATION
  Report Type: 
  Country: None (occurrence: None)
  Receive Date: 20110523
  Receipt Date: 20110209
  Transmission Date: 20111010
  Serious: Yes (Other)
  Sender: FDA-Public Use
  Company Number: DSA_44810_2011

PATIENT
  Sex: Female

DRUGS (5)
  1. LEXAPRO [Suspect]
     Indication: DEPRESSION
     Dosage: (40 MG QD ORAL)
     Route: 048
     Dates: start: 20101101
  2. XANAX [Concomitant]
  3. TRAZODONE HCL [Concomitant]
  4. APLENZIN [Suspect]
     Indication: DEPRESSION
     Dosage: (348 MG QD ORAL)
     Route: 048
     Dates: start: 20110101
  5. OXYCODONE HCL [Concomitant]

REACTIONS (5)
  - TINNITUS [None]
  - URINARY TRACT INFECTION [None]
  - TREMOR [None]
  - DISTURBANCE IN ATTENTION [None]
  - DRUG INTERACTION [None]
